FAERS Safety Report 26151925 (Version 1)
Quarter: 2025Q4

REPORT INFORMATION
  Report Type: Spontaneous
  Country: US (occurrence: US)
  Receive Date: 20251214
  Receipt Date: 20251214
  Transmission Date: 20260118
  Serious: No
  Sender: ZYDUS PHARM
  Company Number: US-CADILA HEALTHCARE LIMITED-US-ZYDUS-131600

PATIENT

DRUGS (2)
  1. MELOXICAM [Suspect]
     Active Substance: MELOXICAM
     Indication: Intervertebral disc protrusion
     Dosage: 15 MILLIGRAM, QD
     Route: 065
     Dates: start: 2020, end: 202511
  2. MELOXICAM [Suspect]
     Active Substance: MELOXICAM
     Indication: Spinal pain

REACTIONS (1)
  - Drug ineffective [Recovered/Resolved]

NARRATIVE: CASE EVENT DATE: 20251101
